FAERS Safety Report 8044047-5 (Version None)
Quarter: 2012Q1

REPORT INFORMATION
  Report Type: 
  Country: None (occurrence: None)
  Receive Date: 20120113
  Receipt Date: 20120110
  Transmission Date: 20120608
  Serious: Yes (Death)
  Sender: FDA-Public Use
  Company Number: NL-JNJFOC-20120103358

PATIENT
  Sex: Female
  Weight: 50 kg

DRUGS (3)
  1. OXAZEPAM [Concomitant]
     Route: 048
  2. FENTANYL [Suspect]
     Indication: COMPLETED SUICIDE
     Dosage: 18 PLASTERS OF 25 UG/HR
     Route: 062
  3. CITALOPRAM [Concomitant]
     Route: 048

REACTIONS (3)
  - DRUG DIVERSION [None]
  - INTENTIONAL OVERDOSE [None]
  - COMPLETED SUICIDE [None]
